FAERS Safety Report 8879044 (Version 1)
Quarter: 2012Q4

REPORT INFORMATION
  Report Type: Spontaneous
  Country: US (occurrence: None)
  Receive Date: 20121031
  Receipt Date: 20121031
  Transmission Date: 20130627
  Serious: Yes (Other)
  Sender: FDA-Public Use
  Company Number: None

PATIENT
  Age: 58 Year
  Sex: Male
  Weight: 102.06 kg

DRUGS (1)
  1. ATORVASTATIN [Suspect]
     Dosage: 80MG 1 A DAY po
     Route: 048
     Dates: start: 20121008, end: 20121026

REACTIONS (4)
  - Product substitution issue [None]
  - Neck pain [None]
  - Headache [None]
  - Influenza like illness [None]
